FAERS Safety Report 18868492 (Version 1)
Quarter: 2021Q1

REPORT INFORMATION
  Report Type: Spontaneous
  Country: US (occurrence: US)
  Receive Date: 20210209
  Receipt Date: 20210209
  Transmission Date: 20210420
  Serious: No
  Sender: FDA-Public Use
  Company Number: US-EMD SERONO-9215531

PATIENT
  Age: 56 Year
  Sex: Female

DRUGS (2)
  1. MAVENCLAD [Suspect]
     Active Substance: CLADRIBINE
     Dosage: YEAR ONE MONTH TWO THERAPY
     Dates: start: 2020, end: 202003
  2. MAVENCLAD [Suspect]
     Active Substance: CLADRIBINE
     Indication: MULTIPLE SCLEROSIS
     Dosage: YEAR ONE MONTH ONE THERAPY
     Dates: start: 20200101, end: 202001

REACTIONS (5)
  - Fatigue [Unknown]
  - B-lymphocyte count decreased [Unknown]
  - Lymphocyte count decreased [Recovered/Resolved]
  - COVID-19 [Not Recovered/Not Resolved]
  - CD8 lymphocytes decreased [Unknown]

NARRATIVE: CASE EVENT DATE: 20200421
